FAERS Safety Report 11248754 (Version 1)
Quarter: 2015Q3

REPORT INFORMATION
  Report Type: Spontaneous
  Country: US (occurrence: US)
  Receive Date: 20150708
  Receipt Date: 20150708
  Transmission Date: 20151125
  Serious: No
  Sender: FDA-Public Use
  Company Number: US-ELI_LILLY_AND_COMPANY-US201009005385

PATIENT
  Age: 45 Year
  Sex: Male

DRUGS (3)
  1. NAPROXEN. [Concomitant]
     Active Substance: NAPROXEN
     Indication: TENDONITIS
  2. ALPRAZOLAM. [Concomitant]
     Active Substance: ALPRAZOLAM
  3. PROZAC [Suspect]
     Active Substance: FLUOXETINE HYDROCHLORIDE
     Indication: DEPRESSION
     Dosage: 40 MG, DAILY (1/D)
     Dates: start: 201008

REACTIONS (3)
  - Fatigue [Unknown]
  - Tendonitis [Unknown]
  - Drug interaction [Unknown]
